FAERS Safety Report 4854964-2 (Version None)
Quarter: 2005Q4

REPORT INFORMATION
  Report Type: 
  Country: None (occurrence: None)
  Receive Date: 20051214
  Receipt Date: 20051130
  Transmission Date: 20060501
  Serious: No
  Sender: FDA-Public Use
  Company Number: GB200512000096

PATIENT
  Age: 50 Year
  Sex: Female

DRUGS (2)
  1. ZYPREXA [Suspect]
     Dosage: 15 MG, UNK
     Route: 065
     Dates: start: 20050601
  2. TRAZODONE HCL [Concomitant]

REACTIONS (1)
  - NEUTROPENIA [None]
